FAERS Safety Report 8390483-7 (Version None)
Quarter: 2012Q2

REPORT INFORMATION
  Report Type: 
  Country: None (occurrence: None)
  Receive Date: 20120529
  Receipt Date: 20120517
  Transmission Date: 20120825
  Serious: Yes (Death, Hospitalization)
  Sender: FDA-Public Use
  Company Number: CA-JNJFOC-20120515365

PATIENT
  Sex: Male
  Weight: 80 kg

DRUGS (4)
  1. APO-SALVENT [Concomitant]
     Dosage: 1-2 PUFFS FOUR TIME DAILY AS NEEDED
     Route: 055
  2. REMICADE [Suspect]
     Indication: CROHN'S DISEASE
     Route: 042
     Dates: start: 20120522
  3. REMICADE [Suspect]
     Route: 042
     Dates: start: 20100401
  4. PERINDOPRIL ERBUMINE [Concomitant]
     Route: 048

REACTIONS (3)
  - LUNG NEOPLASM MALIGNANT [None]
  - DEATH [None]
  - AMYOTROPHIC LATERAL SCLEROSIS [None]
